FAERS Safety Report 12346297 (Version 1)
Quarter: 2016Q2

REPORT INFORMATION
  Report Type: Spontaneous
  Country: US (occurrence: None)
  Receive Date: 20160506
  Receipt Date: 20160506
  Transmission Date: 20160815
  Serious: Yes (Hospitalization)
  Sender: FDA-Public Use
  Company Number: None

PATIENT
  Age: 49 Year
  Sex: Female
  Weight: 72.5 kg

DRUGS (1)
  1. SUMATRIPTAN, 6MG [Suspect]
     Active Substance: SUMATRIPTAN

REACTIONS (7)
  - Unresponsive to stimuli [None]
  - Dizziness [None]
  - Seizure [None]
  - Headache [None]
  - Tremor [None]
  - Oromandibular dystonia [None]
  - Feeling abnormal [None]

NARRATIVE: CASE EVENT DATE: 20160106
